FAERS Safety Report 14049514 (Version 1)
Quarter: 2017Q4

REPORT INFORMATION
  Report Type: Spontaneous
  Country: CH (occurrence: CH)
  Receive Date: 20171005
  Receipt Date: 20171005
  Transmission Date: 20180321
  Serious: Yes (Hospitalization)
  Sender: FDA-Public Use
  Company Number: CH-TEVA-811221ISR

PATIENT
  Age: 85 Year
  Sex: Female

DRUGS (3)
  1. CO-AMOXI -MEPHA 625 LACTAB [Suspect]
     Active Substance: AMOXICILLIN\CLAVULANATE POTASSIUM
     Dosage: 1250 MILLIGRAM DAILY;
     Route: 048
     Dates: start: 20170626, end: 20170725
  2. BELOC ZOK [Concomitant]
     Active Substance: METOPROLOL SUCCINATE
     Dosage: 50 MILLIGRAM DAILY;
     Route: 048
  3. JAKAVI [Concomitant]
     Active Substance: RUXOLITINIB
     Dosage: 20 MILLIGRAM DAILY;
     Route: 048

REACTIONS (3)
  - Malnutrition [Recovering/Resolving]
  - Diarrhoea [Recovered/Resolved]
  - Enteritis [Recovered/Resolved]

NARRATIVE: CASE EVENT DATE: 201707
